FAERS Safety Report 5361527-1 (Version None)
Quarter: 2007Q2

REPORT INFORMATION
  Report Type: 
  Country: None (occurrence: None)
  Receive Date: 20070619
  Receipt Date: 20070612
  Transmission Date: 20071010
  Serious: Yes (Hospitalization)
  Sender: FDA-Public Use
  Company Number: PHEH2007US08667

PATIENT
  Age: 37 Year
  Sex: Male

DRUGS (1)
  1. CLOZARIL [Suspect]
     Indication: HALLUCINATION, AUDITORY
     Dosage: UNK, UNK
     Dates: start: 20050301, end: 20050601

REACTIONS (6)
  - EROSIVE OESOPHAGITIS [None]
  - HAEMATEMESIS [None]
  - PHARYNGOLARYNGEAL PAIN [None]
  - RED BLOOD CELL COUNT DECREASED [None]
  - VOMITING [None]
  - WHITE BLOOD CELL COUNT INCREASED [None]
